FAERS Safety Report 22276911 (Version 2)
Quarter: 2023Q2

REPORT INFORMATION
  Report Type: Spontaneous
  Country: AU (occurrence: AU)
  Receive Date: 20230503
  Receipt Date: 20230613
  Transmission Date: 20230722
  Serious: Yes (Death)
  Sender: FDA-Public Use
  Company Number: AU-BEH-2023157924

PATIENT
  Age: 88 Year
  Sex: Male

DRUGS (6)
  1. PRIVIGEN [Suspect]
     Active Substance: HUMAN IMMUNOGLOBULIN G
     Dosage: 40 GRAM
     Route: 065
     Dates: start: 20230419
  2. RABEPRAZOLE [Concomitant]
     Active Substance: RABEPRAZOLE
  3. DIGOXIN [Concomitant]
     Active Substance: DIGOXIN
  4. DOCUSATE SODIUM [Concomitant]
     Active Substance: DOCUSATE SODIUM
  5. SOTALOL [Concomitant]
     Active Substance: SOTALOL
  6. XARELTO [Concomitant]
     Active Substance: RIVAROXABAN

REACTIONS (6)
  - Aortic aneurysm rupture [Fatal]
  - Blood pressure increased [Fatal]
  - Seizure [Fatal]
  - Abdominal pain [Fatal]
  - Bradycardia [Fatal]
  - Cardiac failure congestive [Fatal]

NARRATIVE: CASE EVENT DATE: 20230419
